FAERS Safety Report 8942669 (Version 1)
Quarter: 2012Q4

REPORT INFORMATION
  Report Type: Spontaneous
  Country: ES (occurrence: None)
  Receive Date: 20121123
  Receipt Date: 20121123
  Transmission Date: 20130627
  Serious: Yes (Other)
  Sender: FDA-Public Use
  Company Number: 2012-18437

PATIENT
  Age: 44 Year
  Sex: Female

DRUGS (4)
  1. DIAZEPAM (WATSON LABORATORIES) (DIAZEPAM) UNK, UNKUNK [Suspect]
     Indication: VICTIM OF SEXUAL ABUSE
     Route: 048
  2. OPIOIDS [Concomitant]
  3. COCAINE (COCAINE) [Concomitant]
  4. BENZODIAZEPINE DERIVATIVES (BENZODIAZEPINE) [Concomitant]

REACTIONS (6)
  - Overdose [None]
  - Intentional drug misuse [None]
  - Sexual abuse [None]
  - Amnesia [None]
  - Diplopia [None]
  - Gait disturbance [None]
